FAERS Safety Report 22288197 (Version 3)
Quarter: 2023Q2

REPORT INFORMATION
  Report Type: Spontaneous
  Country: US (occurrence: US)
  Receive Date: 20230505
  Receipt Date: 20230616
  Transmission Date: 20230722
  Serious: No
  Sender: FDA-Public Use
  Company Number: US-LUPIN PHARMACEUTICALS INC.-2023-03427

PATIENT

DRUGS (1)
  1. SERTRALINE HYDROCHLORIDE [Suspect]
     Active Substance: SERTRALINE HYDROCHLORIDE
     Indication: Product used for unknown indication
     Dosage: 75 MG (50 MG IN MORNING AND 25 MG AT NIGHT)
     Route: 048
     Dates: start: 2017

REACTIONS (3)
  - Thinking abnormal [Unknown]
  - Drug ineffective [Unknown]
  - Product substitution issue [Unknown]
